FAERS Safety Report 5836496-8 (Version None)
Quarter: 2008Q3

REPORT INFORMATION
  Report Type: 
  Country: None (occurrence: None)
  Receive Date: 20080806
  Receipt Date: 20080806
  Transmission Date: 20090109
  Serious: No
  Sender: FDA-Public Use
  Company Number: None

PATIENT
  Age: 71 Year
  Sex: Male
  Weight: 121.36 kg

DRUGS (1)
  1. MORPHINE [Suspect]
     Indication: PAIN
     Dosage: MG OTHER IV
     Route: 042
     Dates: start: 20080328, end: 20080328

REACTIONS (2)
  - DYSPNOEA [None]
  - HYPOTENSION [None]
